FAERS Safety Report 4560514-0 (Version None)
Quarter: 2005Q1

REPORT INFORMATION
  Report Type: 
  Country: None (occurrence: None)
  Receive Date: 20050125
  Receipt Date: 20040929
  Transmission Date: 20050727
  Serious: Yes (Life-Threatening, Hospitalization, Other)
  Sender: FDA-Public Use
  Company Number: PHBS2004JP13085

PATIENT
  Age: 44 Year
  Sex: Male
  Weight: 71 kg

DRUGS (5)
  1. THYRADIN S [Concomitant]
     Indication: PITUITARY TUMOUR
     Dosage: 50 UG/DAY
     Route: 048
     Dates: start: 19980101
  2. GONADORELIN DIACETATE [Concomitant]
     Indication: PITUITARY TUMOUR
     Route: 058
     Dates: start: 19980101
  3. PARLODEL [Suspect]
     Indication: PITUITARY TUMOUR
     Dosage: 27.5 MG/DAY
     Route: 048
     Dates: start: 19980101, end: 20040926
  4. PARLODEL [Suspect]
     Dosage: 17.5 MG/DAY
     Route: 048
     Dates: start: 20040927, end: 20041016
  5. PARLODEL [Suspect]
     Dosage: 27.5 MG/DAY
     Route: 048
     Dates: start: 20041017

REACTIONS (18)
  - ANORECTAL DISORDER [None]
  - ATELECTASIS [None]
  - BLADDER DISORDER [None]
  - CSF MYELIN BASIC PROTEIN INCREASED [None]
  - CSF PROTEIN INCREASED [None]
  - DEEP VEIN THROMBOSIS [None]
  - HYPERREFLEXIA [None]
  - HYPOAESTHESIA [None]
  - MULTIPLE SCLEROSIS [None]
  - MUSCULAR WEAKNESS [None]
  - PLEOCYTOSIS [None]
  - PLEURAL EFFUSION [None]
  - PLEURAL HAEMORRHAGE [None]
  - PLEURISY [None]
  - PULMONARY EMBOLISM [None]
  - PYREXIA [None]
  - REFLEXES ABNORMAL [None]
  - SPINAL CORD INJURY THORACIC [None]
